FAERS Safety Report 7509663-5 (Version None)
Quarter: 2011Q2

REPORT INFORMATION
  Report Type: 
  Country: None (occurrence: None)
  Receive Date: 20110527
  Receipt Date: 20110516
  Transmission Date: 20111010
  Serious: Yes (Other)
  Sender: FDA-Public Use
  Company Number: CA-JNJFOC-20110507480

PATIENT
  Sex: Female
  Weight: 101 kg

DRUGS (17)
  1. QUININE SULFATE [Concomitant]
  2. ATASOL [Concomitant]
     Dosage: DOSE: 30
  3. ALBUTEROL [Concomitant]
     Route: 055
  4. CALCIUM WITH VITAMIN D [Concomitant]
     Dates: start: 20100301
  5. OMEPRAZOLE [Concomitant]
  6. REMICADE [Suspect]
     Indication: PSORIATIC ARTHROPATHY
     Route: 042
     Dates: start: 20110516
  7. K-DUR [Concomitant]
  8. CLOTRIMADERM [Concomitant]
     Route: 061
  9. REMICADE [Suspect]
     Route: 042
     Dates: start: 20090901
  10. CITALOPRAM HYDROBROMIDE [Concomitant]
  11. BISOPROLOL FUMARATE [Concomitant]
  12. DOVONEX [Concomitant]
     Route: 061
  13. LASIX [Concomitant]
  14. EMOCORT 2.5% [Concomitant]
     Route: 061
  15. ASPIRIN [Concomitant]
     Dates: start: 20090901
  16. CALCIUM WITH VITAMIN D [Concomitant]
  17. ALPRAZOLAM [Concomitant]

REACTIONS (2)
  - PAIN [None]
  - JOINT STIFFNESS [None]
